FAERS Safety Report 9699387 (Version 1)
Quarter: 2013Q4

REPORT INFORMATION
  Report Type: Spontaneous
  Country: US (occurrence: US)
  Receive Date: 20131120
  Receipt Date: 20131120
  Transmission Date: 20140711
  Serious: Yes (Other)
  Sender: FDA-Public Use
  Company Number: US-ABBVIE-13P-163-1169442-00

PATIENT
  Sex: Male

DRUGS (1)
  1. CREON [Suspect]
     Indication: PANCREATIC DISORDER
     Route: 048

REACTIONS (2)
  - Intestinal operation [Recovered/Resolved]
  - Diarrhoea [Not Recovered/Not Resolved]
